FAERS Safety Report 8592368-X (Version None)
Quarter: 2012Q3

REPORT INFORMATION
  Report Type: 
  Country: None (occurrence: None)
  Receive Date: 20120814
  Receipt Date: 20120802
  Transmission Date: 20120928
  Serious: Yes (Other)
  Sender: FDA-Public Use
  Company Number: US-ASTRAZENECA-2010SE07418

PATIENT
  Age: 68 Year
  Sex: Male

DRUGS (1)
  1. SYMBICORT [Suspect]
     Dosage: 160/4.5 MCG
     Route: 055

REACTIONS (3)
  - DEAFNESS [None]
  - DYSPNOEA [None]
  - INTENTIONAL DRUG MISUSE [None]
